FAERS Safety Report 7630301-5 (Version None)
Quarter: 2011Q3

REPORT INFORMATION
  Report Type: 
  Country: None (occurrence: None)
  Receive Date: 20110722
  Receipt Date: 20110714
  Transmission Date: 20111222
  Serious: Yes (Hospitalization)
  Sender: FDA-Public Use
  Company Number: PHHY2011GB63098

PATIENT
  Age: 83 Year
  Sex: Female

DRUGS (17)
  1. CLOPIDOGREL [Concomitant]
  2. DOXYCYCLINE [Suspect]
     Dosage: 100 MG, UNK
     Route: 048
     Dates: start: 20110627
  3. BISOPROLOL FUMARATE [Concomitant]
  4. ASPIRIN [Concomitant]
  5. BUMETANIDE [Concomitant]
  6. FELODIPINE [Concomitant]
  7. ISOSORBIDE MONONITRATE [Concomitant]
  8. LEVOTHYROXINE SODIUM [Concomitant]
  9. DOXYCYCLINE [Suspect]
     Indication: INFECTION
     Dosage: 200 MG, UNK
     Route: 048
     Dates: start: 20110626, end: 20110626
  10. BETAHISTINE HYDROCHLORIDE [Concomitant]
  11. ACETAMINOPHEN [Concomitant]
  12. ATORVASTATIN [Suspect]
     Indication: CARDIOVASCULAR EVENT PROPHYLAXIS
     Dosage: 80 MG/DAY
     Route: 048
     Dates: start: 20110401, end: 20110706
  13. RAMIPRIL [Concomitant]
  14. FLUOXETINE [Concomitant]
  15. NITROGLYCERIN [Concomitant]
  16. LACTULOSE [Concomitant]
  17. OMEPRAZOLE [Concomitant]

REACTIONS (2)
  - MYOSITIS [None]
  - CHOLESTASIS [None]
